FAERS Safety Report 21568096 (Version 1)
Quarter: 2022Q4

REPORT INFORMATION
  Report Type: Spontaneous
  Country: DE (occurrence: DE)
  Receive Date: 20221108
  Receipt Date: 20221108
  Transmission Date: 20230113
  Serious: Yes (Other)
  Sender: FDA-Public Use
  Company Number: None

PATIENT
  Age: 27 Year
  Sex: Female

DRUGS (1)
  1. VALPROATE SODIUM [Suspect]
     Active Substance: VALPROATE SODIUM
     Indication: Product used for unknown indication
     Dosage: 1500 MG
     Route: 065

REACTIONS (2)
  - Congenital foot malformation [Recovered/Resolved with Sequelae]
  - Foetal exposure during pregnancy [Unknown]

NARRATIVE: CASE EVENT DATE: 19941115
